FAERS Safety Report 11119449 (Version 1)
Quarter: 2015Q2

REPORT INFORMATION
  Report Type: Report from Study
  Country: FR (occurrence: FR)
  Receive Date: 20150518
  Receipt Date: 20150518
  Transmission Date: 20150821
  Serious: Yes (Other)
  Sender: FDA-Public Use
  Company Number: FR-BAXTER-2015BAX025336

PATIENT

DRUGS (1)
  1. FLUCONAZOLE REDIBAG 2 MG/ML, SOLUTION POUR PERFUSION [Suspect]
     Active Substance: FLUCONAZOLE
     Indication: ANTIFUNGAL PROPHYLAXIS
     Dosage: 200-400 MG PER DAY
     Route: 042

REACTIONS (2)
  - Aspergillus infection [Unknown]
  - Drug ineffective [Not Recovered/Not Resolved]
